FAERS Safety Report 4555581-4 (Version None)
Quarter: 2005Q1

REPORT INFORMATION
  Report Type: 
  Country: None (occurrence: None)
  Receive Date: 20050118
  Receipt Date: 20041109
  Transmission Date: 20050727
  Serious: Yes (Other)
  Sender: FDA-Public Use
  Company Number: A03200403765

PATIENT
  Age: 74 Year
  Sex: Male

DRUGS (1)
  1. UROXATRAL [Suspect]
     Indication: BENIGN PROSTATIC HYPERPLASIA
     Dosage: 10 MG OD ORAL
     Route: 048

REACTIONS (2)
  - DIZZINESS [None]
  - ORTHOSTATIC HYPOTENSION [None]
